FAERS Safety Report 6311082-4 (Version None)
Quarter: 2009Q3

REPORT INFORMATION
  Report Type: 
  Country: None (occurrence: None)
  Receive Date: 20090817
  Receipt Date: 20090707
  Transmission Date: 20100115
  Serious: Yes (Other)
  Sender: FDA-Public Use
  Company Number: GB-JNJFOC-20090702562

PATIENT
  Age: 77 Year
  Sex: Female

DRUGS (10)
  1. REMINYL XR [Suspect]
     Route: 048
  2. REMINYL XR [Suspect]
     Indication: DEMENTIA ALZHEIMER'S TYPE
     Route: 048
  3. ASPIRIN [Concomitant]
     Route: 065
  4. FERROUS SULFATE TAB [Concomitant]
     Route: 065
  5. FUROSEMIDE [Concomitant]
     Route: 065
  6. PARACETAMOL [Concomitant]
     Route: 065
  7. QUININE SULPHATE [Concomitant]
     Route: 065
  8. SENNA [Concomitant]
     Route: 065
  9. SIMVASTATIN [Concomitant]
     Route: 065
  10. TRAMADOL [Concomitant]
     Route: 065

REACTIONS (1)
  - GASTRIC ULCER [None]
